FAERS Safety Report 7206617-3 (Version None)
Quarter: 2010Q4

REPORT INFORMATION
  Report Type: 
  Country: None (occurrence: None)
  Receive Date: 20101217
  Receipt Date: 20101025
  Transmission Date: 20110411
  Serious: No
  Sender: FDA-Public Use
  Company Number: 2010-00910

PATIENT
  Age: 83 Year
  Sex: Female
  Weight: 52.1637 kg

DRUGS (13)
  1. ZICAM COLD REMEDY RAPIDMELTS WITH VITAMIN C [Suspect]
     Dosage: Q 3 HOURS
     Dates: start: 20101024
  2. EVISTA [Concomitant]
  3. BISOPROLOL [Concomitant]
  4. FUMARATE [Concomitant]
  5. LEVOTHYROXINE [Concomitant]
  6. WELCHOL [Concomitant]
  7. CRESTOR [Concomitant]
  8. PRIMIDONE [Concomitant]
  9. PREDNISONE [Concomitant]
  10. LOVAZA [Concomitant]
  11. CALCIUM W/VITAMIN D [Concomitant]
  12. MAGNESIUM [Concomitant]
  13. ASPIRIN [Concomitant]

REACTIONS (1)
  - AGEUSIA [None]
